FAERS Safety Report 6894237-X (Version None)
Quarter: 2010Q3

REPORT INFORMATION
  Report Type: 
  Country: None (occurrence: None)
  Receive Date: 20100802
  Receipt Date: 20100720
  Transmission Date: 20110219
  Serious: Yes (Hospitalization, Other)
  Sender: FDA-Public Use
  Company Number: CA-ELI_LILLY_AND_COMPANY-CA201001006217

PATIENT
  Sex: Female

DRUGS (10)
  1. FORTEO [Suspect]
     Indication: OSTEOPOROSIS
     Dosage: 20 UG, DAILY (1/D)
     Route: 058
     Dates: start: 20090810, end: 20100126
  2. GABAPENTIN [Concomitant]
  3. OXAZEPAM [Concomitant]
  4. DILAUDID [Concomitant]
  5. EFFEXOR [Concomitant]
  6. PREVACID [Concomitant]
  7. IRON [Concomitant]
  8. SYNTHROID [Concomitant]
  9. CALCIUM [Concomitant]
  10. VITAMIN D [Concomitant]

REACTIONS (1)
  - BREAST CANCER [None]
